FAERS Safety Report 24183759 (Version 1)
Quarter: 2024Q3

REPORT INFORMATION
  Report Type: Spontaneous
  Country: US (occurrence: US)
  Receive Date: 20240807
  Receipt Date: 20240807
  Transmission Date: 20241017
  Serious: Yes (Hospitalization, Disabling, Other)
  Sender: AMGEN
  Company Number: US-AMGEN-USASP2024153289

PATIENT
  Age: 80 Year
  Sex: Male

DRUGS (1)
  1. OTEZLA [Suspect]
     Active Substance: APREMILAST
     Indication: Psoriasis
     Dosage: 30 OR 80 MG, QD
     Route: 048

REACTIONS (7)
  - Pulmonary mass [Unknown]
  - Nephrolithiasis [Unknown]
  - Chondropathy [Unknown]
  - Rotator cuff syndrome [Unknown]
  - Onychomadesis [Unknown]
  - Tooth disorder [Unknown]
  - Gingival disorder [Unknown]

NARRATIVE: CASE EVENT DATE: 20240101
